FAERS Safety Report 25757379 (Version 1)
Quarter: 2025Q3

REPORT INFORMATION
  Report Type: Spontaneous
  Country: EU (occurrence: EU)
  Receive Date: 20250903
  Receipt Date: 20250903
  Transmission Date: 20251021
  Serious: Yes (Hospitalization, Other)
  Sender: SANOFI AVENTIS
  Company Number: None

PATIENT
  Age: 62 Year
  Sex: Male
  Weight: 64.3 kg

DRUGS (3)
  1. LOVENOX [Suspect]
     Active Substance: ENOXAPARIN SODIUM
     Indication: Product used for unknown indication
     Dates: start: 20250617, end: 20250709
  2. RISPERIDONE [Suspect]
     Active Substance: RISPERIDONE
     Indication: Thrombosis prophylaxis
     Route: 048
     Dates: start: 20250617, end: 20250709
  3. CYAMEMAZINE [Suspect]
     Active Substance: CYAMEMAZINE
     Indication: Product used for unknown indication
     Route: 048
     Dates: start: 20250629, end: 20250703

REACTIONS (3)
  - Hepatic cytolysis [Recovering/Resolving]
  - Jaundice [Recovered/Resolved]
  - Cholestasis [Recovering/Resolving]

NARRATIVE: CASE EVENT DATE: 20250630
